FAERS Safety Report 9546526 (Version 2)
Quarter: 2013Q3

REPORT INFORMATION
  Report Type: Spontaneous
  Country: US (occurrence: US)
  Receive Date: 20130923
  Receipt Date: 20130923
  Transmission Date: 20140515
  Serious: Yes (Other)
  Sender: FDA-Public Use
  Company Number: US-RB-056731-13

PATIENT
  Sex: Male

DRUGS (1)
  1. SUBOXONE FILM [Suspect]
     Indication: DRUG DEPENDENCE
     Dosage: SUBOXONE FILM
     Route: 060

REACTIONS (20)
  - Panic reaction [Unknown]
  - Palpitations [Unknown]
  - Agitation [Unknown]
  - Decreased appetite [Unknown]
  - Diarrhoea [Unknown]
  - Mydriasis [Unknown]
  - Social phobia [Unknown]
  - Insomnia [Unknown]
  - Product taste abnormal [Unknown]
  - Migraine [Unknown]
  - Depressed mood [Unknown]
  - Depression [Unknown]
  - Headache [Unknown]
  - Vision blurred [Unknown]
  - Tremor [Unknown]
  - Feeling of body temperature change [Unknown]
  - Libido decreased [Unknown]
  - Drug withdrawal syndrome [Unknown]
  - Dissociative disorder [Unknown]
  - Suicidal ideation [Unknown]
